FAERS Safety Report 7290747-4 (Version None)
Quarter: 2011Q1

REPORT INFORMATION
  Report Type: 
  Country: None (occurrence: None)
  Receive Date: 20110210
  Receipt Date: 20110210
  Transmission Date: 20110831
  Serious: Yes (Hospitalization)
  Sender: FDA-Public Use
  Company Number: None

PATIENT
  Sex: Female
  Weight: 59.5 kg

DRUGS (7)
  1. ERBITUX [Suspect]
     Dosage: 388 MG
  2. OMEPRAZOLE [Concomitant]
  3. PRAVACHOL [Concomitant]
  4. CISPLATIN [Suspect]
     Dosage: 47 MG
  5. GLIPIZIDE [Concomitant]
  6. LISINOPRIL [Concomitant]
  7. GLUCOPHAGE [Concomitant]

REACTIONS (3)
  - HUNGER [None]
  - DIARRHOEA [None]
  - DRUG INEFFECTIVE [None]
